FAERS Safety Report 9906126 (Version 1)
Quarter: 2014Q1

REPORT INFORMATION
  Report Type: Report from Study
  Country: DK (occurrence: DK)
  Receive Date: 20140218
  Receipt Date: 20140218
  Transmission Date: 20141002
  Serious: Yes (Death)
  Sender: FDA-Public Use
  Company Number: DK-UCBSA-112812

PATIENT
  Sex: Male

DRUGS (2)
  1. LEVETIRACETAM [Suspect]
     Indication: EPILEPSY
  2. VIGABATRIN [Suspect]
     Indication: EPILEPSY

REACTIONS (2)
  - Sudden unexplained death in epilepsy [Fatal]
  - Drug ineffective [Unknown]
